FAERS Safety Report 24727620 (Version 3)
Quarter: 2024Q4

REPORT INFORMATION
  Report Type: Spontaneous
  Country: US (occurrence: US)
  Receive Date: 20241212
  Receipt Date: 20241226
  Transmission Date: 20250114
  Serious: Yes (Other)
  Sender: AMGEN
  Company Number: US-AMGEN-USASP2024241419

PATIENT
  Age: 67 Year
  Sex: Female
  Weight: 65 kg

DRUGS (2)
  1. NEULASTA [Suspect]
     Active Substance: PEGFILGRASTIM
     Indication: Prophylaxis
     Dosage: UNK UNK, Q2WK
     Route: 065
  2. NEULASTA [Suspect]
     Active Substance: PEGFILGRASTIM
     Indication: Pancreatic carcinoma
     Dosage: UNK UNK, Q2WK
     Route: 065

REACTIONS (5)
  - Blood pressure increased [Unknown]
  - Hyperhidrosis [Unknown]
  - Gastroenteritis viral [Unknown]
  - Device adhesion issue [Unknown]
  - Drug dose omission by device [Unknown]

NARRATIVE: CASE EVENT DATE: 20241206
